FAERS Safety Report 4659032-0 (Version None)
Quarter: 2005Q2

REPORT INFORMATION
  Report Type: 
  Country: None (occurrence: None)
  Receive Date: 20050509
  Receipt Date: 20050426
  Transmission Date: 20051028
  Serious: Yes (Hospitalization)
  Sender: FDA-Public Use
  Company Number: 04P-087-0256455-00

PATIENT
  Age: 31 Year
  Sex: Male

DRUGS (15)
  1. KALETRA [Suspect]
     Indication: HIV INFECTION
     Dosage: SEE IMAGE
     Route: 048
     Dates: start: 20021123, end: 20021126
  2. KALETRA [Suspect]
     Indication: HIV INFECTION
     Dosage: SEE IMAGE
     Route: 048
     Dates: start: 20040206
  3. DIDANOSINE [Suspect]
     Indication: HIV INFECTION
     Dosage: 250 MG, 1 IN 1 D, PER ORAL
     Route: 048
     Dates: start: 20021123, end: 20040205
  4. ABACAVIR [Suspect]
     Indication: HIV INFECTION
     Dosage: 600 MG, 1 IN 1 D, PER ORAL
     Route: 048
     Dates: start: 20021123, end: 20040205
  5. EFAVIRENZ [Suspect]
     Indication: HIV INFECTION
     Dosage: 600 MG, 1 IN 1 D, PER ORAL
     Route: 048
     Dates: start: 20021127, end: 20040205
  6. LAMIVUDINE [Concomitant]
  7. STAVUDINE [Concomitant]
  8. GANCICLOVIR [Concomitant]
  9. AZITHROMYCIN DIHYDRATE [Concomitant]
  10. FOSCARNET SODIUM HYDRATE [Concomitant]
  11. BACTRIM [Concomitant]
  12. FILGRASTIM [Concomitant]
  13. PENTAMIDINE ISETHIONATE [Concomitant]
  14. CEFMETAZOLE SODIUM [Concomitant]
  15. FLUCONAZOLE [Concomitant]

REACTIONS (7)
  - APPENDICITIS [None]
  - BLOOD AMYLASE INCREASED [None]
  - BLOOD TRIGLYCERIDES INCREASED [None]
  - BRADYCARDIA [None]
  - DIZZINESS [None]
  - FEELING COLD [None]
  - GAMMA-GLUTAMYLTRANSFERASE INCREASED [None]
